FAERS Safety Report 17772378 (Version 2)
Quarter: 2020Q3

REPORT INFORMATION
  Report Type: Spontaneous
  Country: CZ (occurrence: CZ)
  Receive Date: 20200512
  Receipt Date: 20200708
  Transmission Date: 20201102
  Serious: Yes (Death, Other)
  Sender: FDA-Public Use
  Company Number: CZ-AMGEN-CZESP2020072875

PATIENT
  Age: 32 Year
  Sex: Female

DRUGS (13)
  1. PLERIXAFOR [Concomitant]
     Active Substance: PLERIXAFOR
     Indication: PERIPHERAL BLOOD STEM CELL APHERESIS
     Dosage: 0.24 MICROGRAM/KILOGRAM
     Route: 058
  2. METHOTREXATE. [Concomitant]
     Active Substance: METHOTREXATE
     Indication: PROPHYLAXIS
  3. DEXAMETHASONE. [Concomitant]
     Active Substance: DEXAMETHASONE
     Dosage: UNK UNK, QD (16 MG WITH A TAPERING DOSE OF 4 MG WEEKLY)
     Route: 048
  4. CYTARABINE. [Concomitant]
     Active Substance: CYTARABINE
     Indication: PROPHYLAXIS
     Dosage: 40 MILLIGRAM
  5. METHOTREXATE. [Concomitant]
     Active Substance: METHOTREXATE
     Indication: HODGKIN^S DISEASE
     Dosage: 3.5 GM/M2 (HIGH DOSE) AND 12 MG
     Route: 042
  6. BENDAMUSTINE [Concomitant]
     Active Substance: BENDAMUSTINE
     Indication: HODGKIN^S DISEASE
     Dosage: 90 MILLIGRAM/SQ. METER, Q3WK
     Route: 042
  7. THIOTEPA. [Concomitant]
     Active Substance: THIOTEPA
     Dosage: 10 MILLIGRAM/KILOGRAM
     Route: 042
  8. ETOPOSIDE. [Concomitant]
     Active Substance: ETOPOSIDE
     Dosage: 150 MILLIGRAM/SQ. METER
     Route: 042
  9. HYDROCORTISONE. [Concomitant]
     Active Substance: HYDROCORTISONE
     Indication: PROPHYLAXIS
     Dosage: 50 MILLIGRAM
  10. PROCARBAZINE [Concomitant]
     Active Substance: PROCARBAZINE
     Indication: HODGKIN^S DISEASE
     Dosage: 100 MILLIGRAM/SQ. METER, Q2WK
     Route: 048
  11. CARMUSTINE. [Concomitant]
     Active Substance: CARMUSTINE
     Indication: PROPHYLAXIS
     Dosage: 400 MILLIGRAM/SQ. METER
     Route: 042
  12. FILGRASTIM [Suspect]
     Active Substance: FILGRASTIM
     Indication: PERIPHERAL BLOOD STEM CELL APHERESIS
     Dosage: 10 MICROGRAM/KILOGRAM, QD
     Route: 058
  13. BRENTUXIMAB VEDOTIN [Concomitant]
     Active Substance: BRENTUXIMAB VEDOTIN
     Indication: HODGKIN^S DISEASE
     Dosage: 1.8 MILLIGRAM/KILOGRAM (ON DAY ONE)
     Route: 042

REACTIONS (1)
  - Malignant neoplasm progression [Fatal]
